FAERS Safety Report 23854339 (Version 3)
Quarter: 2024Q4

REPORT INFORMATION
  Report Type: Spontaneous
  Country: JP (occurrence: JP)
  Receive Date: 20240514
  Receipt Date: 20241008
  Transmission Date: 20250114
  Serious: No
  Sender: OTSUKA
  Company Number: JP-OTSUKA-2024_013404

PATIENT
  Age: 5 Decade
  Sex: Female

DRUGS (2)
  1. REXULTI [Suspect]
     Active Substance: BREXPIPRAZOLE
     Indication: Major depression
     Dosage: 1MG
     Route: 065
  2. VORTIOXETINE HYDROBROMIDE [Concomitant]
     Active Substance: VORTIOXETINE HYDROBROMIDE
     Indication: Major depression
     Dosage: 20 MG
     Route: 065

REACTIONS (2)
  - Depressive symptom [Unknown]
  - Drug effect less than expected [Unknown]
